FAERS Safety Report 15777406 (Version 1)
Quarter: 2018Q4

REPORT INFORMATION
  Report Type: Report from Study
  Country: US (occurrence: US)
  Receive Date: 20181231
  Receipt Date: 20181231
  Transmission Date: 20190205
  Serious: No
  Sender: FDA-Public Use
  Company Number: US-CLOVIS ONCOLOGY-CLO-2018-001542

PATIENT
  Age: 62 Year
  Sex: Female

DRUGS (2)
  1. RUBRACA [Suspect]
     Active Substance: RUCAPARIB CAMSYLATE
     Dosage: 600 MG, BID
     Route: 048
     Dates: start: 20181026
  2. RUBRACA [Suspect]
     Active Substance: RUCAPARIB CAMSYLATE
     Indication: OVARIAN CANCER
     Dosage: 300 MG, BID
     Route: 048
     Dates: start: 20181013, end: 20181025

REACTIONS (8)
  - Nausea [Recovered/Resolved]
  - Ear pain [Not Recovered/Not Resolved]
  - Dysgeusia [Recovering/Resolving]
  - Decreased appetite [Not Recovered/Not Resolved]
  - Liver function test increased [Unknown]
  - Accidental underdose [Unknown]
  - Product dose omission [Unknown]
  - Dyspepsia [Recovered/Resolved]

NARRATIVE: CASE EVENT DATE: 2018
